FAERS Safety Report 8989877 (Version 1)
Quarter: 2012Q4

REPORT INFORMATION
  Report Type: 
  Country: US (occurrence: US)
  Receive Date: 20121228
  Receipt Date: 20121228
  Transmission Date: 20130627
  Serious: Yes (Hospitalization)
  Sender: FDA-Public Use
  Company Number: US-GLAXOSMITHKLINE-A1006559A

PATIENT
  Age: 60 Year
  Sex: Female

DRUGS (2)
  1. ADVAIR [Suspect]
     Route: 055
     Dates: start: 20110420
  2. VENTOLIN [Suspect]
     Route: 055
     Dates: start: 20110420

REACTIONS (1)
  - Hospitalisation [Recovered/Resolved]
